FAERS Safety Report 10591876 (Version 1)
Quarter: 2014Q4

REPORT INFORMATION
  Report Type: Spontaneous
  Country: PL (occurrence: PL)
  Receive Date: 20141119
  Receipt Date: 20141119
  Transmission Date: 20150529
  Serious: Yes (Other)
  Sender: FDA-Public Use
  Company Number: PL-ACCORD-027113

PATIENT
  Sex: Male
  Weight: 2.67 kg

DRUGS (4)
  1. TACROLIMUS. [Suspect]
     Active Substance: TACROLIMUS
     Indication: HEART TRANSPLANT
     Dosage: EARLIER 12 MG THEN DOSE INCREASED TO 20 MG PER DAY, AND THEN AGAIN DOSE WAS REDUCED TO 15 NG/ML.
     Route: 064
  2. HYDROXYPROGESTERONE [Concomitant]
     Active Substance: HYDROXYPROGESTERONE
     Dosage: NATURAL PROGESTERONE AT DOSE 2 ? 100 MG.
     Route: 064
  3. HYDROXYPROGESTERONE [Concomitant]
     Active Substance: HYDROXYPROGESTERONE
     Route: 064
  4. BETAMETHASONE [Concomitant]
     Active Substance: BETAMETHASONE
     Dosage: TWO INTRAMUSCULAR 12 MG DOSES OF BETAMETHASONE IN AN INTERVAL OF 24 H.
     Route: 064

REACTIONS (3)
  - Congenital pneumonia [Unknown]
  - Foetal exposure during pregnancy [Unknown]
  - Exposure during breast feeding [Unknown]
